FAERS Safety Report 24210278 (Version 3)
Quarter: 2024Q3

REPORT INFORMATION
  Report Type: Spontaneous
  Country: US (occurrence: US)
  Receive Date: 20240814
  Receipt Date: 20240926
  Transmission Date: 20241016
  Serious: Yes (Other)
  Sender: PFIZER
  Company Number: US-MLMSERVICE-20240807-PI153014-00145-2

PATIENT
  Age: 38 Year
  Sex: Male

DRUGS (1)
  1. FENTANYL CITRATE [Suspect]
     Active Substance: FENTANYL CITRATE
     Dosage: 1-2 G PER DAY
     Route: 055

REACTIONS (3)
  - Intentional product misuse [Recovered/Resolved]
  - Drug use disorder [Recovered/Resolved]
  - Drug withdrawal syndrome [Recovered/Resolved]
